FAERS Safety Report 13473140 (Version 3)
Quarter: 2017Q2

REPORT INFORMATION
  Report Type: Report from Study
  Country: US (occurrence: US)
  Receive Date: 20170424
  Receipt Date: 20170605
  Transmission Date: 20170830
  Serious: Yes (Hospitalization, Other)
  Sender: FDA-Public Use
  Company Number: US-BAYER-2014-058880

PATIENT
  Age: 34 Year
  Sex: Male

DRUGS (3)
  1. STIVARGA [Suspect]
     Active Substance: REGORAFENIB
     Indication: COLON CANCER
     Dosage: 160 MG, QD (FULL DOSE)
     Route: 048
     Dates: start: 201403
  2. STIVARGA [Suspect]
     Active Substance: REGORAFENIB
     Indication: COLON CANCER
     Dosage: 160 MG, QD (4X40MG)
     Route: 048
     Dates: start: 20140410
  3. STIVARGA [Suspect]
     Active Substance: REGORAFENIB
     Indication: COLON CANCER
     Dosage: 80 MG, QD (WITH FOOD FOR 21 DAYS ON AND 7 DAYS OFF)
     Route: 048
     Dates: start: 2014

REACTIONS (23)
  - Spinal cord drainage [None]
  - Abdominal pain [Unknown]
  - Hypoacusis [None]
  - Decreased appetite [None]
  - Adverse drug reaction [None]
  - Haematochezia [None]
  - Laboratory test abnormal [None]
  - Muscle spasms [None]
  - Surgery [None]
  - Gait disturbance [None]
  - Dysphonia [None]
  - Surgery [None]
  - Pain in extremity [Not Recovered/Not Resolved]
  - Haematemesis [None]
  - Blood urine present [None]
  - Ear infection [Recovered/Resolved]
  - Palmar-plantar erythrodysaesthesia syndrome [Recovering/Resolving]
  - Asthenia [None]
  - Oropharyngeal pain [None]
  - Gastrointestinal motility disorder [Unknown]
  - Pain in extremity [None]
  - Weight decreased [None]
  - Diarrhoea [None]

NARRATIVE: CASE EVENT DATE: 2014
